FAERS Safety Report 12474575 (Version 2)
Quarter: 2016Q3

REPORT INFORMATION
  Report Type: Report from Study
  Country: US (occurrence: US)
  Receive Date: 20160617
  Receipt Date: 20160714
  Transmission Date: 20161109
  Serious: Yes (Hospitalization)
  Sender: FDA-Public Use
  Company Number: US-AMGEN-USACT2016074932

PATIENT
  Age: 77 Year
  Sex: Female

DRUGS (16)
  1. PREFILLED AUTOINJECTOR/PEN [Suspect]
     Active Substance: DEVICE
     Indication: DYSLIPIDAEMIA
  2. LIVALO [Concomitant]
     Active Substance: PITAVASTATIN CALCIUM
     Indication: HYPERCHOLESTEROLAEMIA
     Dosage: 1 MG, QD
     Route: 048
     Dates: start: 20111005
  3. ARTHROMYCIN [Concomitant]
     Indication: PULMONARY CONGESTION
     Dosage: 250-500 MG, ONCE
     Route: 048
     Dates: start: 20140228, end: 20140303
  4. RAMIPRIL. [Concomitant]
     Active Substance: RAMIPRIL
     Indication: CORONARY ARTERY DISEASE
     Dosage: 10 MG, QD
     Route: 048
     Dates: start: 2005
  5. COENZYME Q10 [Concomitant]
     Active Substance: UBIDECARENONE
     Indication: MEDICAL DIET
     Dosage: 100 MG, UNK
     Route: 048
     Dates: start: 201101
  6. ASPIRIN. [Concomitant]
     Active Substance: ASPIRIN
     Indication: CORONARY ARTERY DISEASE
     Dosage: 81-325 MG, QD
     Route: 048
     Dates: start: 1998, end: 20160521
  7. AMG 145 [Suspect]
     Active Substance: EVOLOCUMAB
     Indication: HYPERLIPIDAEMIA
     Dosage: 140 MG, Q2WK
     Route: 058
     Dates: start: 20130612, end: 20160414
  8. AMG 145 [Suspect]
     Active Substance: EVOLOCUMAB
     Indication: DYSLIPIDAEMIA
  9. RANEXA [Concomitant]
     Active Substance: RANOLAZINE
     Indication: CORONARY ARTERY DISEASE
     Dosage: 500 MG, BID
     Route: 048
     Dates: start: 201108, end: 20160521
  10. VITAMIN C [Concomitant]
     Active Substance: ASCORBIC ACID
     Indication: PULMONARY CONGESTION
     Dosage: 1 UNK, QD
     Route: 048
     Dates: start: 20140218, end: 20140303
  11. PREFILLED AUTOINJECTOR/PEN [Suspect]
     Active Substance: DEVICE
     Indication: HYPERLIPIDAEMIA
     Dosage: UNK
     Route: 058
     Dates: start: 20130612, end: 20160414
  12. ZETIA [Concomitant]
     Active Substance: EZETIMIBE
     Indication: HYPERCHOLESTEROLAEMIA
     Dosage: 5 MG, QD
     Route: 048
     Dates: start: 20110527, end: 20160521
  13. ECHINACEA ROOT [Concomitant]
     Indication: PULMONARY CONGESTION
     Dosage: 1 UNK, QD
     Route: 048
     Dates: start: 20140218, end: 20140303
  14. NITROSTAT [Concomitant]
     Active Substance: NITROGLYCERIN
     Indication: CORONARY ARTERY DISEASE
     Dosage: 0.4 MG, AS NECESSARY
     Route: 060
     Dates: start: 1998, end: 20160521
  15. ZINC [Concomitant]
     Active Substance: ZINC\ZINC CHLORIDE
     Indication: PULMONARY CONGESTION
     Dosage: 1 UNK, QD
     Route: 048
     Dates: start: 20140218, end: 20140303
  16. LIDOCAINE. [Concomitant]
     Active Substance: LIDOCAINE
     Dosage: ONCE
     Route: 058
     Dates: start: 20140401, end: 20140501

REACTIONS (1)
  - Cholecystitis acute [Recovered/Resolved]

NARRATIVE: CASE EVENT DATE: 20160515
